FAERS Safety Report 6923971-8 (Version None)
Quarter: 2010Q3

REPORT INFORMATION
  Report Type: 
  Country: None (occurrence: None)
  Receive Date: 20100813
  Receipt Date: 20100805
  Transmission Date: 20110219
  Serious: Yes (Hospitalization)
  Sender: FDA-Public Use
  Company Number: TR-ELI_LILLY_AND_COMPANY-TR201008001551

PATIENT
  Weight: 3.11 kg

DRUGS (3)
  1. HUMULIN R [Suspect]
     Dosage: 11 U, 3/D
     Route: 064
     Dates: start: 20100519, end: 20100716
  2. HUMULIN R [Suspect]
     Dosage: 4 IU, OTHER (AT NOON)
     Route: 064
     Dates: start: 20100519, end: 20100716
  3. HUMULIN R [Suspect]
     Dosage: 4 IU, EACH EVENING
     Route: 064
     Dates: start: 20100519, end: 20100716

REACTIONS (2)
  - DRUG EXPOSURE DURING PREGNANCY [None]
  - JAUNDICE NEONATAL [None]
